FAERS Safety Report 14833571 (Version 2)
Quarter: 2019Q3

REPORT INFORMATION
  Report Type: Report from Study
  Country: JP (occurrence: JP)
  Receive Date: 20180501
  Receipt Date: 20190703
  Transmission Date: 20191004
  Serious: Yes (Other)
  Sender: FDA-Public Use
  Company Number: JP-FERRINGPH-2017FE05370

PATIENT
  Age: 32 Year
  Sex: Female
  Weight: 49 kg

DRUGS (8)
  1. PREMARIN [Concomitant]
     Active Substance: ESTROGENS, CONJUGATED
     Indication: PREGNANCY
     Dosage: 3.75 MG, UNK
     Route: 048
     Dates: start: 20151205, end: 20160112
  2. PROGESTON DEPOT [Concomitant]
     Indication: PREGNANCY
     Dosage: 125 MG, UNK
     Route: 030
     Dates: start: 20151213, end: 20160112
  3. LUTORAL [Concomitant]
     Active Substance: CHLORMADINONE ACETATE
     Indication: PRODUCT USED FOR UNKNOWN INDICATION
     Dosage: 3 DF, UNK
     Route: 048
     Dates: start: 20151118, end: 20151204
  4. BAYASPIRIN [Concomitant]
     Active Substance: ASPIRIN
     Indication: PREGNANCY
     Dosage: 100 MG, UNK
     Route: 048
     Dates: start: 20151205, end: 20160112
  5. PROGESTERONE. [Concomitant]
     Active Substance: PROGESTERONE
     Indication: PRODUCT USED FOR UNKNOWN INDICATION
     Dosage: 50 MG, 3 TIMES DAILY
     Route: 030
     Dates: start: 20151118, end: 20151204
  6. PROGESTERONE. [Suspect]
     Active Substance: PROGESTERONE
     Indication: ASSISTED FERTILISATION
     Dosage: 100 MG, 3 TIMES DAILY
     Route: 067
     Dates: start: 20151205, end: 20151212
  7. UTROGESTAN [Concomitant]
     Active Substance: PROGESTERONE
     Indication: PRODUCT USED FOR UNKNOWN INDICATION
     Dosage: 800 MG, UNK
     Route: 067
     Dates: start: 20151118, end: 20151204
  8. PROGESTON DEPOT [Concomitant]
     Dosage: 62.5 MG, UNK
     Route: 030
     Dates: start: 20151205, end: 20151212

REACTIONS (2)
  - Genital haemorrhage [Recovered/Resolved]
  - Premature delivery [Unknown]

NARRATIVE: CASE EVENT DATE: 20151212
